FAERS Safety Report 14092096 (Version 2)
Quarter: 2017Q4

REPORT INFORMATION
  Report Type: Spontaneous
  Country: US (occurrence: US)
  Receive Date: 20171016
  Receipt Date: 20171023
  Transmission Date: 20180321
  Serious: No
  Sender: FDA-Public Use
  Company Number: US-PFIZER INC-2017443981

PATIENT
  Age: 72 Year
  Sex: Female
  Weight: 99.77 kg

DRUGS (2)
  1. IBRANCE [Suspect]
     Active Substance: PALBOCICLIB
     Dosage: 125 MG, CYCLIC (1 CAPSULE DAILY 1-21/ DAYS + 7/DAYS OFF)
     Route: 048
     Dates: start: 20170929
  2. IBRANCE [Suspect]
     Active Substance: PALBOCICLIB
     Indication: BREAST CANCER
     Dosage: 125 MG, CYCLIC (1 CAP/ DAILY 1-21/ DAYS)
     Route: 048
     Dates: start: 20170929

REACTIONS (4)
  - Eating disorder [Unknown]
  - Hot flush [Unknown]
  - Fatigue [Unknown]
  - Somnolence [Unknown]
